FAERS Safety Report 7426509-4 (Version None)
Quarter: 2011Q2

REPORT INFORMATION
  Report Type: 
  Country: None (occurrence: None)
  Receive Date: 20110420
  Receipt Date: 20110415
  Transmission Date: 20111010
  Serious: Yes (Disabling)
  Sender: FDA-Public Use
  Company Number: US-PFIZER INC-2011053794

PATIENT
  Sex: Female
  Weight: 109 kg

DRUGS (4)
  1. ALDACTONE [Suspect]
     Indication: HAIR GROWTH ABNORMAL
     Dosage: 25 MG, 1X/DAY
     Route: 048
     Dates: start: 20110201
  2. ZOLOFT [Suspect]
     Indication: MENOPAUSE
  3. ZOLOFT [Suspect]
     Indication: NIGHT SWEATS
     Dosage: 100 MG, 1X/DAY
     Route: 048
     Dates: start: 20110101
  4. TRAZODONE [Concomitant]
     Dosage: 50 MG, UNK

REACTIONS (3)
  - IMPAIRED WORK ABILITY [None]
  - GENERAL PHYSICAL HEALTH DETERIORATION [None]
  - HYPERTENSION [None]
